FAERS Safety Report 11542316 (Version 1)
Quarter: 2015Q3

REPORT INFORMATION
  Report Type: Spontaneous
  Country: US (occurrence: US)
  Receive Date: 20150903
  Receipt Date: 20150903
  Transmission Date: 20151125
  Serious: No
  Sender: FDA-Public Use
  Company Number: US-ELI_LILLY_AND_COMPANY-US201204004526

PATIENT
  Sex: Male

DRUGS (2)
  1. INSULIN DETEMIR [Concomitant]
     Active Substance: INSULIN DETEMIR
     Indication: TYPE 1 DIABETES MELLITUS
     Dosage: UNK
  2. HUMALOG [Suspect]
     Active Substance: INSULIN LISPRO
     Indication: TYPE 1 DIABETES MELLITUS
     Dosage: UNK, OTHER

REACTIONS (5)
  - Erythema [Unknown]
  - Blood glucose fluctuation [Unknown]
  - Peripheral swelling [Unknown]
  - Blood glucose increased [Unknown]
  - Rash pruritic [Unknown]
